FAERS Safety Report 7162884-6 (Version None)
Quarter: 2010Q4

REPORT INFORMATION
  Report Type: 
  Country: None (occurrence: None)
  Receive Date: 20101210
  Receipt Date: 20101210
  Transmission Date: 20110411
  Serious: Yes (Other)
  Sender: FDA-Public Use
  Company Number: None

PATIENT
  Age: 32 Year
  Sex: Male
  Weight: 88.4514 kg

DRUGS (1)
  1. SERTRALINE HYDROCHLORIDE [Suspect]
     Indication: ANXIETY
     Dosage: 50MG DAILY PO
     Route: 048
     Dates: start: 20070801, end: 20101206

REACTIONS (2)
  - HYPOAESTHESIA [None]
  - PRODUCT SUBSTITUTION ISSUE [None]
